FAERS Safety Report 19271989 (Version 2)
Quarter: 2024Q1

REPORT INFORMATION
  Report Type: Spontaneous
  Country: US (occurrence: US)
  Receive Date: 20210519
  Receipt Date: 20240201
  Transmission Date: 20240409
  Serious: No
  Sender: FDA-Public Use
  Company Number: US-NOVEN PHARMACEUTICALS, INC.-2021US002363

PATIENT
  Sex: Female

DRUGS (2)
  1. DAYTRANA [Suspect]
     Active Substance: METHYLPHENIDATE
     Indication: Product used for unknown indication
     Dosage: 20 MG/9HR, UNK
     Route: 062
  2. DAYTRANA [Suspect]
     Active Substance: METHYLPHENIDATE
     Dosage: 10MG/9HR, UNK
     Route: 062
     Dates: start: 20210315, end: 202103

REACTIONS (1)
  - Drug ineffective [Recovered/Resolved]

NARRATIVE: CASE EVENT DATE: 20210315
